FAERS Safety Report 7148883-9 (Version None)
Quarter: 2010Q4

REPORT INFORMATION
  Report Type: 
  Country: None (occurrence: None)
  Receive Date: 20101209
  Receipt Date: 20101201
  Transmission Date: 20110411
  Serious: Yes (Hospitalization, Other)
  Sender: FDA-Public Use
  Company Number: US-AMGEN-QUU442159

PATIENT

DRUGS (2)
  1. EPOGEN [Suspect]
     Indication: RENAL FAILURE CHRONIC
     Dosage: 20000 IU, UNK
     Dates: start: 20100714, end: 20101013
  2. EPOGEN [Suspect]
     Indication: DIALYSIS
     Dosage: 20000 IU, UNK
     Route: 058

REACTIONS (8)
  - ABSCESS [None]
  - ASCITES [None]
  - CARDIOMEGALY [None]
  - GENERALISED OEDEMA [None]
  - HEPATIC CIRRHOSIS [None]
  - HYPOMAGNESAEMIA [None]
  - INFECTION [None]
  - MASTOIDITIS [None]
